FAERS Safety Report 13862664 (Version 2)
Quarter: 2017Q4

REPORT INFORMATION
  Report Type: Report from Study
  Country: None (occurrence: US)
  Receive Date: 20170814
  Receipt Date: 20171025
  Transmission Date: 20180320
  Serious: Yes (Other)
  Sender: FDA-Public Use
  Company Number: US-ABBVIE-17K-163-1980167-00

PATIENT
  Age: 59 Year
  Sex: Male

DRUGS (5)
  1. HUMIRA [Suspect]
     Active Substance: ADALIMUMAB
     Indication: PSORIASIS
     Route: 058
     Dates: start: 201604, end: 201705
  2. AMBIEN [Concomitant]
     Active Substance: ZOLPIDEM TARTRATE
     Indication: INSOMNIA
  3. NADOLOL. [Concomitant]
     Active Substance: NADOLOL
     Indication: INSOMNIA
  4. ANDROGEL [Concomitant]
     Active Substance: TESTOSTERONE
     Indication: BLOOD TESTOSTERONE DECREASED
  5. AMITRIPTYLINE [Concomitant]
     Active Substance: AMITRIPTYLINE
     Indication: ANXIETY

REACTIONS (5)
  - Skin burning sensation [Unknown]
  - Systemic lupus erythematosus rash [Unknown]
  - Lethargy [Unknown]
  - Red blood cell count increased [Unknown]
  - Pruritus [Unknown]

NARRATIVE: CASE EVENT DATE: 201704
